FAERS Safety Report 4553527-6 (Version None)
Quarter: 2005Q1

REPORT INFORMATION
  Report Type: 
  Country: None (occurrence: None)
  Receive Date: 20050112
  Receipt Date: 20050103
  Transmission Date: 20050727
  Serious: Yes (Hospitalization)
  Sender: FDA-Public Use
  Company Number: 2005005259

PATIENT
  Age: 72 Year
  Sex: Female
  Weight: 64 kg

DRUGS (5)
  1. DALTEPARIN         (DALTEPARIN) [Suspect]
     Indication: ILL-DEFINED DISORDER
     Dosage: 2500 U/ 0.2 ML, SUBCUTANEOUS
     Route: 058
     Dates: start: 20041022, end: 20041030
  2. ONDANSETRON HCL [Concomitant]
  3. ACETAMINOPHEN [Concomitant]
  4. NEFOPAM HYDROCHLORIDE       (NEFOPAM HYDROCHLORIDE) [Concomitant]
  5. MORPHINE SULFATE [Concomitant]

REACTIONS (9)
  - ADRENAL HAEMORRHAGE [None]
  - ADRENOCORTICAL INSUFFICIENCY ACUTE [None]
  - FLATULENCE [None]
  - LIVEDO RETICULARIS [None]
  - PLATELET AGGREGATION ABNORMAL [None]
  - PULMONARY EMBOLISM [None]
  - SHOCK [None]
  - THROMBOCYTOPENIA [None]
  - ULTRASOUND DOPPLER ABNORMAL [None]
